FAERS Safety Report 4597130-0 (Version None)
Quarter: 2005Q1

REPORT INFORMATION
  Report Type: 
  Country: None (occurrence: None)
  Receive Date: 20050301
  Receipt Date: 20050209
  Transmission Date: 20050727
  Serious: Yes (Hospitalization)
  Sender: FDA-Public Use
  Company Number: F01200500254

PATIENT
  Age: 53 Year
  Sex: Female

DRUGS (4)
  1. (OXALIPLATIN) - SOLUTION - 75 MG/M2 [Suspect]
     Indication: PANCREATIC CARCINOMA METASTATIC
     Dosage: 1 DAY - TIME TO ONSET : 2 WEEKS 2 DAYS
     Route: 042
     Dates: start: 20050114, end: 20050114
  2. GEMZAR [Suspect]
     Dosage: 1 DAY - TIME TO ONSET : 2 WEEKS 3 DAYS
     Route: 042
     Dates: start: 20050113, end: 20050113
  3. FOSINOPRIL SODIUM [Concomitant]
  4. PRAVASTATIN [Concomitant]

REACTIONS (14)
  - ACUTE RESPIRATORY DISTRESS SYNDROME [None]
  - CARDIOMEGALY [None]
  - CONNECTIVE TISSUE INFLAMMATION [None]
  - DRUG TOXICITY [None]
  - EJECTION FRACTION DECREASED [None]
  - FIBRIN D DIMER INCREASED [None]
  - INFECTION [None]
  - INTERSTITIAL LUNG DISEASE [None]
  - LYMPHADENOPATHY MEDIASTINAL [None]
  - METASTASES TO BILIARY TRACT [None]
  - NEUROTOXICITY [None]
  - PLEURAL EFFUSION [None]
  - PULMONARY FIBROSIS [None]
  - SCLERODERMA [None]
